FAERS Safety Report 5126325-2 (Version None)
Quarter: 2006Q4

REPORT INFORMATION
  Report Type: 
  Country: None (occurrence: None)
  Receive Date: 20061010
  Receipt Date: 20060925
  Transmission Date: 20070319
  Serious: Yes (Death)
  Sender: FDA-Public Use
  Company Number: 2006097842

PATIENT
  Age: 53 Year
  Sex: Male
  Weight: 75.7507 kg

DRUGS (7)
  1. IRINOTECAN HCL [Suspect]
     Indication: SMALL CELL LUNG CANCER STAGE UNSPECIFIED
     Dosage: 150 MG/M1 (1 IN 3 WK), INTRAVENOUS
     Route: 042
     Dates: start: 20060621, end: 20060621
  2. OXALIPLATIN [Suspect]
     Indication: SMALL CELL LUNG CANCER STAGE UNSPECIFIED
     Dosage: 85 MG/M2 (1 IN 3 WK), INTRAVENOUS
     Route: 042
     Dates: start: 20060621, end: 20060621
  3. NEULASTA [Concomitant]
  4. DEXAMETHASONE TAB [Concomitant]
  5. ONDANSETRON HCL [Concomitant]
  6. LORTAB [Concomitant]
  7. PROMETHAZINE HCL [Concomitant]

REACTIONS (1)
  - ACUTE RESPIRATORY DISTRESS SYNDROME [None]
